FAERS Safety Report 15276452 (Version 1)
Quarter: 2018Q3

REPORT INFORMATION
  Report Type: Spontaneous
  Country: US (occurrence: US)
  Receive Date: 20180814
  Receipt Date: 20180814
  Transmission Date: 20181010
  Serious: No
  Sender: FDA-Public Use
  Company Number: US-VERTEX PHARMACEUTICALS-2018-002850

PATIENT
  Age: 36 Year
  Sex: Female

DRUGS (32)
  1. SYMBICORT [Concomitant]
     Active Substance: BUDESONIDE\FORMOTEROL FUMARATE DIHYDRATE
     Dosage: 2 PUFFS, BID
     Route: 055
     Dates: start: 20171208
  2. PERTZYE [Concomitant]
     Active Substance: PANCRELIPASE AMYLASE\PANCRELIPASE LIPASE\PANCRELIPASE PROTEASE
     Dosage: 2 CAPSULES WITH FATTY MEALS AND 1 CAPSULE WITH SNACKS
     Dates: start: 20180201
  3. AMOXICILLIN. [Concomitant]
     Active Substance: AMOXICILLIN
  4. DEXCON [Concomitant]
  5. PREDNISOLONE. [Concomitant]
     Active Substance: PREDNISOLONE
  6. LIDOCAINE. [Concomitant]
     Active Substance: LIDOCAINE
  7. PROAIR HFA [Concomitant]
     Active Substance: ALBUTEROL SULFATE
  8. ALBUTEROL                          /00139501/ [Concomitant]
     Active Substance: ALBUTEROL
     Dosage: 2.5 MG BY NEBULIZER 4?6 TIMES A DAY, PRN
     Route: 055
     Dates: start: 20180316
  9. AZITHROMYCIN ANHYDROUS. [Concomitant]
     Active Substance: AZITHROMYCIN ANHYDROUS
     Dosage: 1 TABLET, QD
     Route: 048
     Dates: start: 20171127
  10. PROTONIX                           /00661201/ [Concomitant]
     Active Substance: OMEPRAZOLE
     Dosage: 1 TABLET, QD
     Route: 048
     Dates: start: 20180201
  11. HUMALOG [Concomitant]
     Active Substance: INSULIN LISPRO
  12. SUMATRIPTAN. [Concomitant]
     Active Substance: SUMATRIPTAN
  13. LEVOCETIRIZIN [Concomitant]
     Active Substance: LEVOCETIRIZINE DIHYDROCHLORIDE
  14. FEXOFENADINE [Concomitant]
     Active Substance: FEXOFENADINE\FEXOFENADINE HYDROCHLORIDE
  15. PULMOZYME [Concomitant]
     Active Substance: DORNASE ALFA
     Dosage: 2.5 MILLILITER, BID
     Route: 055
     Dates: start: 20180319
  16. SYMDEKO [Suspect]
     Active Substance: IVACAFTOR\TEZACAFTOR
     Indication: CYSTIC FIBROSIS
     Dosage: ONE TABLET OF (100 MG TEZACAFTOR/ 150 MG IVACAFTOR) IN THE MORNING AND ONE TABLET (150 MG IVACAFTOR)
     Route: 048
     Dates: start: 20180419
  17. MONTELUKAST [Concomitant]
     Active Substance: MONTELUKAST SODIUM
  18. PANTOPRAZOLE [Concomitant]
     Active Substance: PANTOPRAZOLE
  19. METOCLOPRAM [Concomitant]
     Active Substance: METOCLOPRAMIDE
  20. LEVOCETIRIZINE [Concomitant]
     Active Substance: LEVOCETIRIZINE
     Dosage: 1 TABLET (5 MG), BID
     Route: 048
     Dates: start: 20180307
  21. LIDODERM [Concomitant]
     Active Substance: LIDOCAINE
     Dosage: APPLY UP TO 3 PATCHES TO AFFECTED AREA ONCE DAILY
     Dates: start: 20180206
  22. OXYCODONE [Concomitant]
     Active Substance: OXYCODONE
     Dosage: UNTAKE 0.5 TO 1 TABLET EVERY 8 HOURS AS NEEDED.
     Route: 048
     Dates: start: 20180508
  23. SODIUM CHLORIDE. [Concomitant]
     Active Substance: SODIUM CHLORIDE
     Dosage: 8 MILLILITER, TID
     Route: 055
     Dates: start: 20171020
  24. ALBUTEROL HFA [Concomitant]
     Active Substance: ALBUTEROL SULFATE
     Indication: WHEEZING
     Dosage: 2 PUFFS EVERY 4?6 HOURS, PRN
     Route: 055
     Dates: start: 20171110
  25. ALENDRONATE [Concomitant]
     Active Substance: ALENDRONATE SODIUM
     Dosage: 1 TABLET, 1 TIME WEEKLY
     Route: 048
     Dates: start: 20180202
  26. ZOFRAN [Concomitant]
     Active Substance: ONDANSETRON HYDROCHLORIDE
     Dosage: 1 TABLET EVERY 8 HOURS AS NEEDED
     Route: 048
     Dates: start: 20150806
  27. KITABIS PAK [Concomitant]
     Active Substance: TOBRAMYCIN
     Dosage: 5 MILLILITER, BID (28 DAYS ON AND 28 DAYS OFF)
     Route: 055
  28. LANTUS [Concomitant]
     Active Substance: INSULIN GLARGINE
  29. CETIRIZINE [Concomitant]
     Active Substance: CETIRIZINE HYDROCHLORIDE
  30. CIPROFLOXACIN. [Concomitant]
     Active Substance: CIPROFLOXACIN
  31. PREDNISONE. [Concomitant]
     Active Substance: PREDNISONE
  32. BANOPHEN [Concomitant]
     Active Substance: DIPHENHYDRAMINE HYDROCHLORIDE

REACTIONS (3)
  - Headache [Unknown]
  - Rhinorrhoea [Recovered/Resolved]
  - Cough [Recovered/Resolved]

NARRATIVE: CASE EVENT DATE: 20180419
